FAERS Safety Report 8586048-4 (Version None)
Quarter: 2012Q3

REPORT INFORMATION
  Report Type: 
  Country: None (occurrence: None)
  Receive Date: 20120810
  Receipt Date: 20120801
  Transmission Date: 20120928
  Serious: Yes (Hospitalization, Other)
  Sender: FDA-Public Use
  Company Number: AU-ROCHE-1072670

PATIENT
  Sex: Female

DRUGS (15)
  1. VENTOLIN [Concomitant]
     Indication: SINUSITIS
     Dates: start: 20120311, end: 20120317
  2. COPEGUS [Suspect]
     Dosage: 2 TAB AT AM AND 1 TAB AT PM
     Route: 048
     Dates: start: 20120402, end: 20120426
  3. ACETAMINOPHEN [Concomitant]
     Indication: HEADACHE
     Route: 048
     Dates: start: 20120302
  4. TMC435 (NS3/4A PROTEASE INHIBITOR) [Suspect]
     Route: 048
     Dates: start: 20120423
  5. COPEGUS [Suspect]
     Dates: start: 20120430
  6. TOPAMAX [Concomitant]
     Indication: MIGRAINE
     Route: 048
  7. GENTAMICIN [Concomitant]
     Indication: SINUSITIS
     Dosage: 800 MG /2ML
     Dates: start: 20120311, end: 20120316
  8. TRIMETHOPRIM [Concomitant]
     Indication: URINARY TRACT INFECTION
     Route: 048
     Dates: start: 20120412, end: 20120418
  9. TRIMETHOPRIM [Concomitant]
     Dates: start: 20120515
  10. TMC435 (NS3/4A PROTEASE INHIBITOR) [Suspect]
     Indication: HEPATITIS C
     Route: 048
     Dates: start: 20120228, end: 20120521
  11. PEGASYS [Suspect]
     Indication: HEPATITIS C
     Dosage: 0.5 ML OVER A WEEK
     Route: 058
     Dates: start: 20120301, end: 20120517
  12. COPEGUS [Suspect]
     Indication: HEPATITIS C
     Route: 048
     Dates: start: 20120228, end: 20120329
  13. PEGASYS [Suspect]
     Dosage: 0.5 ML OVER A WEEK
     Route: 058
     Dates: start: 20120423
  14. MERSYNDOL [Concomitant]
     Indication: MUSCLE SPASMS
     Route: 048
  15. ATROVENT [Concomitant]
     Indication: SINUSITIS
     Dosage: 500 UG IN 1 ML
     Dates: start: 20120311, end: 20120316

REACTIONS (2)
  - PANCYTOPENIA [None]
  - ANAEMIA [None]
